FAERS Safety Report 16828849 (Version 3)
Quarter: 2020Q2

REPORT INFORMATION
  Report Type: Report from Study
  Country: US (occurrence: US)
  Receive Date: 20190919
  Receipt Date: 20200409
  Transmission Date: 20200713
  Serious: No
  Sender: FDA-Public Use
  Company Number: PHEH2019US038658

PATIENT
  Sex: Female

DRUGS (1)
  1. COSENTYX [Suspect]
     Active Substance: SECUKINUMAB
     Indication: PUSTULOTIC ARTHRO-OSTEITIS
     Dosage: UNK
     Route: 065

REACTIONS (3)
  - Rash [Unknown]
  - Psoriasis [Unknown]
  - Intentional product misuse [Unknown]
